FAERS Safety Report 19120350 (Version 1)
Quarter: 2021Q2

REPORT INFORMATION
  Report Type: Other
  Country: CA (occurrence: CA)
  Receive Date: 20210412
  Receipt Date: 20210412
  Transmission Date: 20210717
  Serious: Yes (Disabling)
  Sender: FDA-Public Use
  Company Number: CA-APOTEX-2021AP008307

PATIENT
  Age: 51 Year
  Sex: Female

DRUGS (4)
  1. APO?MIRTAZAPINE [Suspect]
     Active Substance: MIRTAZAPINE
     Indication: INSOMNIA
     Dosage: UNK
     Route: 065
  2. APO?MIRTAZAPINE [Suspect]
     Active Substance: MIRTAZAPINE
     Indication: ANXIETY
  3. XANAX [Concomitant]
     Active Substance: ALPRAZOLAM
     Indication: PRODUCT USED FOR UNKNOWN INDICATION
     Dosage: UNK
     Route: 065
  4. MOMETASONE FUROATE. [Concomitant]
     Active Substance: MOMETASONE FUROATE
     Indication: PRODUCT USED FOR UNKNOWN INDICATION
     Dosage: UNK
     Route: 065

REACTIONS (6)
  - Nightmare [Recovered/Resolved]
  - Psychotic disorder [Recovered/Resolved]
  - Sleep deficit [Recovered/Resolved]
  - Panic reaction [Recovered/Resolved]
  - Abnormal sleep-related event [Recovered/Resolved]
  - Initial insomnia [Recovered/Resolved]
